FAERS Safety Report 5028358-3 (Version None)
Quarter: 2006Q2

REPORT INFORMATION
  Report Type: 
  Country: None (occurrence: None)
  Receive Date: 20060503
  Receipt Date: 20060223
  Transmission Date: 20061013
  Serious: No
  Sender: FDA-Public Use
  Company Number: FACT0600102

PATIENT
  Age: 64 Year
  Sex: Male
  Weight: 99.8 kg

DRUGS (7)
  1. FACTIVE [Suspect]
     Indication: RESPIRATORY TRACT INFECTION BACTERIAL
     Dosage: 320 MG, QD, ORAL
     Route: 048
     Dates: start: 20060221, end: 20060225
  2. TEQUIN [Suspect]
     Indication: BRONCHITIS
     Dosage: QD, ORAL
     Route: 048
  3. LOTREL [Concomitant]
  4. METOPROLOL SUCCINATE [Concomitant]
  5. ACTOS [Concomitant]
  6. AMARYL [Concomitant]
  7. GLUCOPHAGE [Concomitant]

REACTIONS (1)
  - BLOOD GLUCOSE INCREASED [None]
